FAERS Safety Report 6151836-0 (Version None)
Quarter: 2009Q2

REPORT INFORMATION
  Report Type: 
  Country: None (occurrence: None)
  Receive Date: 20090408
  Receipt Date: 20090327
  Transmission Date: 20091009
  Serious: Yes (Death, Congenital Anomaly)
  Sender: FDA-Public Use
  Company Number: 1000005642

PATIENT

DRUGS (3)
  1. ESCITALOPRAM [Suspect]
     Indication: DEPRESSION
     Dosage: 20 MG (20 MG, 1 IN 1 D), TRANSPLACENTAL
     Route: 064
     Dates: start: 20040928, end: 20080905
  2. AMITRIPTLINE HYDROCHLORIDE TAB [Suspect]
     Dosage: 25 MG (25 MG, 1 IN 1 D), TRANSPLACENTAL
     Route: 064
     Dates: start: 20080917, end: 20081129
  3. DIAZEPAM [Concomitant]

REACTIONS (4)
  - CONGENITAL BLADDER ANOMALY [None]
  - MATERNAL DRUGS AFFECTING FOETUS [None]
  - PULMONARY HYPOPLASIA [None]
  - STILLBIRTH [None]
